FAERS Safety Report 6248621-8 (Version None)
Quarter: 2009Q2

REPORT INFORMATION
  Report Type: 
  Country: None (occurrence: None)
  Receive Date: 20090624
  Receipt Date: 20090624
  Transmission Date: 20091009
  Serious: No
  Sender: FDA-Public Use
  Company Number: None

PATIENT
  Age: 72 Year
  Sex: Male
  Weight: 78 kg

DRUGS (12)
  1. MORPHINE [Suspect]
     Indication: PAIN
     Dosage: 0/3/10 PCA PRN
     Dates: start: 20090523, end: 20090524
  2. PERCOCET [Suspect]
     Indication: PAIN
     Dosage: 2 TAB PO Q4 PRN
     Route: 048
     Dates: start: 20090524
  3. LIPITOR [Concomitant]
  4. DOCUSATE [Concomitant]
  5. GABAPENTIN [Concomitant]
  6. INSULIN [Concomitant]
  7. LOSARTAN POTASSIUM [Concomitant]
  8. OXAZEPAM [Concomitant]
  9. ZOSYN [Concomitant]
  10. RANITIDINE [Concomitant]
  11. VANCOMYIN [Concomitant]
  12. ASPIRIN [Concomitant]

REACTIONS (2)
  - CREATININE RENAL CLEARANCE DECREASED [None]
  - DEPRESSED LEVEL OF CONSCIOUSNESS [None]
